FAERS Safety Report 8908236 (Version 2)
Quarter: 2012Q4

REPORT INFORMATION
  Report Type: 
  Country: JP (occurrence: JP)
  Receive Date: 20121114
  Receipt Date: 20121204
  Transmission Date: 20130627
  Serious: Yes (Hospitalization)
  Sender: FDA-Public Use
  Company Number: PHHY2012JP058474

PATIENT
  Age: 83 Year
  Sex: Female
  Weight: 42 kg

DRUGS (4)
  1. NEORAL [Suspect]
     Indication: PSORIASIS
     Dosage: 75 mg, QD
     Route: 048
     Dates: start: 201111, end: 20120618
  2. NEORAL [Suspect]
     Indication: ERYTHRODERMIC PSORIASIS
     Dosage: 200 mg, QD
     Route: 048
     Dates: start: 20120625, end: 201209
  3. TIGASON [Concomitant]
     Indication: PSORIASIS
     Route: 048
  4. NORVASC [Concomitant]
     Indication: HYPERTENSION
     Route: 048

REACTIONS (3)
  - Dementia [Recovering/Resolving]
  - Blood pressure decreased [Recovered/Resolved]
  - Drug effect incomplete [Recovering/Resolving]
